FAERS Safety Report 6043454-X (Version None)
Quarter: 2009Q1

REPORT INFORMATION
  Report Type: 
  Country: None (occurrence: None)
  Receive Date: 20090114
  Receipt Date: 20090114
  Transmission Date: 20090719
  Serious: Yes (Other)
  Sender: FDA-Public Use
  Company Number: None

PATIENT
  Age: 47 Year
  Sex: Female
  Weight: 77.1115 kg

DRUGS (1)
  1. ROCEPHIN [Suspect]
     Indication: LYME DISEASE
     Dosage: 2MG DAILY INTRATHORACIC 1XDAY
     Route: 038
     Dates: start: 20090107, end: 20090113

REACTIONS (4)
  - CONVULSION [None]
  - DYSPNOEA [None]
  - PARAESTHESIA [None]
  - TREMOR [None]
